FAERS Safety Report 8262946-6 (Version None)
Quarter: 2012Q2

REPORT INFORMATION
  Report Type: 
  Country: None (occurrence: None)
  Receive Date: 20120405
  Receipt Date: 20120326
  Transmission Date: 20120825
  Serious: Yes (Disabling, Other)
  Sender: FDA-Public Use
  Company Number: US-PURDUE-USA-2011-0075828

PATIENT
  Sex: Female

DRUGS (2)
  1. PERCOCET [Suspect]
  2. OXYCONTIN [Suspect]
     Indication: BACK PAIN
     Dosage: 80 MG, BID

REACTIONS (13)
  - PAIN [None]
  - DIARRHOEA [None]
  - UNEVALUABLE EVENT [None]
  - HYPERHIDROSIS [None]
  - DRUG WITHDRAWAL SYNDROME [None]
  - TOOTH DISCOLOURATION [None]
  - TONGUE DISCOLOURATION [None]
  - DRUG EFFECT DECREASED [None]
  - TOOTH LOSS [None]
  - CHRONIC OBSTRUCTIVE PULMONARY DISEASE [None]
  - VOMITING [None]
  - DRUG EFFECT DELAYED [None]
  - NAUSEA [None]
